FAERS Safety Report 13362611 (Version 1)
Quarter: 2017Q1

REPORT INFORMATION
  Report Type: Spontaneous
  Country: US (occurrence: US)
  Receive Date: 20170323
  Receipt Date: 20170323
  Transmission Date: 20170429
  Serious: No
  Sender: FDA-Public Use
  Company Number: US-PFIZER INC-2017121073

PATIENT
  Age: 40 Year
  Sex: Female
  Weight: 68.93 kg

DRUGS (2)
  1. PROTONIX [Concomitant]
     Active Substance: PANTOPRAZOLE SODIUM
     Indication: GASTRIC ULCER
     Dosage: 40 MG, 1X/DAY
     Route: 048
  2. ZOLOFT [Suspect]
     Active Substance: SERTRALINE HYDROCHLORIDE
     Indication: ANXIETY
     Dosage: 100 MG, 1X/DAY (AT NIGHT)
     Route: 048

REACTIONS (6)
  - Gastric disorder [Unknown]
  - Condition aggravated [Unknown]
  - Anxiety [Recovering/Resolving]
  - Drug ineffective [Unknown]
  - Abdominal discomfort [Unknown]
  - Abdominal pain upper [Recovering/Resolving]

NARRATIVE: CASE EVENT DATE: 201701
